FAERS Safety Report 14267912 (Version 1)
Quarter: 2017Q4

REPORT INFORMATION
  Report Type: Spontaneous
  Country: US (occurrence: None)
  Receive Date: 20171211
  Receipt Date: 20171211
  Transmission Date: 20180321
  Serious: Yes (Disabling)
  Sender: FDA-Public Use
  Company Number: None

PATIENT
  Age: 40 Year
  Sex: Female
  Weight: 66.68 kg

DRUGS (1)
  1. MIRENA [Suspect]
     Active Substance: LEVONORGESTREL

REACTIONS (7)
  - Weight increased [None]
  - Dyspareunia [None]
  - Depression [None]
  - Abdominal distension [None]
  - Abdominal pain [None]
  - Fatigue [None]
  - Libido decreased [None]

NARRATIVE: CASE EVENT DATE: 20160101
